FAERS Safety Report 19724032 (Version 1)
Quarter: 2021Q3

REPORT INFORMATION
  Report Type: Spontaneous
  Country: DE (occurrence: DE)
  Receive Date: 20210820
  Receipt Date: 20210820
  Transmission Date: 20211014
  Serious: Yes (Other)
  Sender: FDA-Public Use
  Company Number: DE-TERSERA THERAPEUTICS LLC-2021TRS003883

PATIENT

DRUGS (1)
  1. ZOLADEX [Suspect]
     Active Substance: GOSERELIN ACETATE
     Indication: PRODUCT USED FOR UNKNOWN INDICATION
     Dosage: 10.8MG UNKNOWN
     Route: 058
     Dates: end: 202008

REACTIONS (4)
  - Anorgasmia [Not Recovered/Not Resolved]
  - Muscle atrophy [Unknown]
  - Depression [Unknown]
  - Sleep disorder [Unknown]
